FAERS Safety Report 8983974 (Version 1)
Quarter: 2012Q4

REPORT INFORMATION
  Report Type: Spontaneous
  Country: US (occurrence: None)
  Receive Date: 20121218
  Receipt Date: 20121218
  Transmission Date: 20130627
  Serious: Yes (Other)
  Sender: FDA-Public Use
  Company Number: None

PATIENT
  Age: 61 Year
  Sex: Male
  Weight: 88.45 kg

DRUGS (3)
  1. QUETIAPINE FUMARATE [Suspect]
     Indication: DEPRESSION
     Dates: start: 20120815, end: 20120918
  2. QUETIAPINE FUMARATE [Suspect]
     Indication: SLEEP DISORDER
     Dates: start: 20120815, end: 20120918
  3. QUETIAPINE FUMARATE [Suspect]
     Indication: POST-TRAUMATIC STRESS DISORDER
     Dates: start: 20120815, end: 20120918

REACTIONS (4)
  - Muscle spasms [None]
  - Muscle spasms [None]
  - Increased upper airway secretion [None]
  - Product substitution issue [None]
